FAERS Safety Report 4765423-X (Version None)
Quarter: 2005Q3

REPORT INFORMATION
  Report Type: 
  Country: None (occurrence: None)
  Receive Date: 20050906
  Receipt Date: 20050901
  Transmission Date: 20060218
  Serious: Yes (Death, Other)
  Sender: FDA-Public Use
  Company Number: IT-2005-008145

PATIENT
  Age: 66 Year
  Sex: Male

DRUGS (1)
  1. ULTRAVIST 300 [Suspect]
     Indication: COMPUTERISED TOMOGRAM
     Dosage: INTRAVENOUS
     Route: 042
     Dates: start: 20050517, end: 20050517

REACTIONS (2)
  - CARDIAC ARREST [None]
  - CONVULSION [None]
